FAERS Safety Report 9146712 (Version 1)
Quarter: 2013Q1

REPORT INFORMATION
  Report Type: Spontaneous
  Country: US (occurrence: None)
  Receive Date: 20130228
  Receipt Date: 20130228
  Transmission Date: 20140127
  Serious: Yes (Other)
  Sender: FDA-Public Use
  Company Number: None

PATIENT
  Sex: Female
  Weight: 64.41 kg

DRUGS (2)
  1. ACTONEL [Suspect]
     Indication: OSTEOPOROSIS
     Dosage: 35MG 1X A WEEK??*END DATE DELETED DUE TO #OF DIGITS
     Dates: start: 201301
  2. ACTONEL [Suspect]
     Indication: SCOLIOSIS
     Dosage: 35MG 1X A WEEK??*END DATE DELETED DUE TO #OF DIGITS
     Dates: start: 201301

REACTIONS (1)
  - Arthralgia [None]
